FAERS Safety Report 23442478 (Version 1)
Quarter: 2024Q1

REPORT INFORMATION
  Report Type: Spontaneous
  Country: CN (occurrence: CN)
  Receive Date: 20240125
  Receipt Date: 20240125
  Transmission Date: 20240410
  Serious: Yes (Other)
  Sender: FDA-Public Use
  Company Number: CN-002147023-NVSC2024CN016500

PATIENT
  Age: 68 Year
  Sex: Female
  Weight: 62 kg

DRUGS (2)
  1. TOBRADEX [Suspect]
     Active Substance: DEXAMETHASONE\TOBRAMYCIN
     Indication: Intraocular pressure increased
     Dosage: 1 DRP, QD
     Route: 047
     Dates: start: 20181105, end: 20240118
  2. TOBRADEX [Suspect]
     Active Substance: DEXAMETHASONE\TOBRAMYCIN
     Indication: Symptomatic treatment

REACTIONS (3)
  - Keratic precipitates [Unknown]
  - Intraocular pressure increased [Recovering/Resolving]
  - Corneal oedema [Unknown]

NARRATIVE: CASE EVENT DATE: 20240118
